FAERS Safety Report 5908580-1 (Version None)
Quarter: 2008Q3

REPORT INFORMATION
  Report Type: 
  Country: None (occurrence: None)
  Receive Date: 20080930
  Receipt Date: 20080919
  Transmission Date: 20090109
  Serious: Yes (Hospitalization)
  Sender: FDA-Public Use
  Company Number: 2005BI002778

PATIENT
  Age: 45 Year
  Sex: Male

DRUGS (1)
  1. AVONEX [Suspect]
     Indication: MULTIPLE SCLEROSIS
     Dosage: 30 UG QW IM
     Route: 030
     Dates: start: 20000901, end: 20060201

REACTIONS (5)
  - DIVERTICULITIS [None]
  - LARGE INTESTINE PERFORATION [None]
  - PERITONITIS [None]
  - PNEUMONIA [None]
  - POISONING [None]
